FAERS Safety Report 9262501 (Version 2)
Quarter: 2013Q2

REPORT INFORMATION
  Report Type: Spontaneous
  Country: FR (occurrence: None)
  Receive Date: 20130425
  Receipt Date: 20130513
  Transmission Date: 20140414
  Serious: Yes (Hospitalization, Other)
  Sender: FDA-Public Use
  Company Number: 2013P1004881

PATIENT
  Age: 75 Year
  Sex: Male

DRUGS (1)
  1. AMOXICILLIN + CLAVULANATE POTASSIUM [Suspect]
     Indication: OROPHARYNGEAL PAIN

REACTIONS (4)
  - Drug reaction with eosinophilia and systemic symptoms [None]
  - Hepatitis cholestatic [None]
  - General physical health deterioration [None]
  - Insomnia [None]
